FAERS Safety Report 12283331 (Version 2)
Quarter: 2016Q2

REPORT INFORMATION
  Report Type: Report from Study
  Country: US (occurrence: US)
  Receive Date: 20160419
  Receipt Date: 20160426
  Transmission Date: 20160815
  Serious: Yes (Other)
  Sender: FDA-Public Use
  Company Number: US-ABBVIE-16K-163-1604881-00

PATIENT
  Age: 10 Year
  Sex: Female
  Weight: 40.86 kg

DRUGS (5)
  1. METHOTREXATE [Concomitant]
     Active Substance: METHOTREXATE
     Indication: UVEITIS
  2. ATROPINE. [Concomitant]
     Active Substance: ATROPINE
     Indication: MIOSIS
  3. FOLIC ACID. [Concomitant]
     Active Substance: FOLIC ACID
     Indication: PRODUCT USED FOR UNKNOWN INDICATION
  4. HUMIRA [Suspect]
     Active Substance: ADALIMUMAB
     Indication: UVEITIS
     Route: 058
     Dates: start: 201603
  5. PREDNISONE. [Concomitant]
     Active Substance: PREDNISONE
     Indication: FOREIGN BODY IN EYE

REACTIONS (3)
  - Intraocular pressure increased [Not Recovered/Not Resolved]
  - Injection site pain [Not Recovered/Not Resolved]
  - Cataract subcapsular [Unknown]

NARRATIVE: CASE EVENT DATE: 201603
